FAERS Safety Report 7081736-3 (Version None)
Quarter: 2010Q4

REPORT INFORMATION
  Report Type: 
  Country: None (occurrence: None)
  Receive Date: 20101103
  Receipt Date: 20101025
  Transmission Date: 20110411
  Serious: Yes (Hospitalization)
  Sender: FDA-Public Use
  Company Number: TR-ELI_LILLY_AND_COMPANY-TR201010006365

PATIENT
  Age: 80 Year
  Sex: Female

DRUGS (3)
  1. HUMALOG MIX 75/25 [Suspect]
     Indication: DIABETES MELLITUS
     Dosage: 16 U, EACH MORNING
     Dates: start: 20101021
  2. HUMALOG MIX 75/25 [Suspect]
     Dosage: 8 U, EACH EVENING
     Dates: start: 20101021
  3. GLIFOR [Concomitant]
     Dosage: UNK, 2/D

REACTIONS (3)
  - BLOOD GLUCOSE FLUCTUATION [None]
  - BLOOD GLUCOSE INCREASED [None]
  - SYNCOPE [None]
